FAERS Safety Report 20206281 (Version 1)
Quarter: 2021Q4

REPORT INFORMATION
  Report Type: Spontaneous
  Country: US (occurrence: None)
  Receive Date: 20211217
  Receipt Date: 20211217
  Transmission Date: 20220303
  Serious: No
  Sender: FDA-Public Use
  Company Number: None

PATIENT
  Sex: Female

DRUGS (1)
  1. HUMIRA [Suspect]
     Active Substance: ADALIMUMAB
     Dosage: FREQUENCY : EVERY OTHER DAY;?
     Route: 058

REACTIONS (5)
  - Bronchitis [None]
  - Sinusitis [None]
  - Ear infection [None]
  - Temporomandibular joint syndrome [None]
  - Dizziness [None]
